FAERS Safety Report 5297542-6 (Version None)
Quarter: 2007Q2

REPORT INFORMATION
  Report Type: 
  Country: None (occurrence: None)
  Receive Date: 20070416
  Receipt Date: 20070402
  Transmission Date: 20071010
  Serious: Yes (Other)
  Sender: FDA-Public Use
  Company Number: PHEH2007US03940

PATIENT
  Age: 75 Year
  Sex: Female

DRUGS (1)
  1. ZELNORM [Suspect]
     Indication: CONSTIPATION
     Dosage: 1/2 A 6 MG TABLET BID
     Dates: start: 20070314, end: 20070402

REACTIONS (3)
  - CHEST DISCOMFORT [None]
  - FATIGUE [None]
  - VISUAL FIELD DEFECT [None]
